FAERS Safety Report 17044035 (Version 1)
Quarter: 2019Q4

REPORT INFORMATION
  Report Type: Spontaneous
  Country: US (occurrence: US)
  Receive Date: 20191118
  Receipt Date: 20191118
  Transmission Date: 20200122
  Serious: Yes (Hospitalization, Other)
  Sender: FDA-Public Use
  Company Number: NVSC2019US037705

PATIENT
  Age: 69 Year
  Sex: Male

DRUGS (2)
  1. PREDNISONE. [Suspect]
     Active Substance: PREDNISONE
     Indication: GLOMERULONEPHRITIS
     Dosage: UNK
     Route: 065
  2. MYCOPHENOLATE MOFETIL. [Suspect]
     Active Substance: MYCOPHENOLATE MOFETIL
     Indication: GLOMERULONEPHRITIS
     Dosage: UNK
     Route: 065

REACTIONS (14)
  - Lethargy [Recovering/Resolving]
  - Cryptococcosis [Recovering/Resolving]
  - Meningitis bacterial [Recovering/Resolving]
  - Cryptococcal cutaneous infection [Recovering/Resolving]
  - Pneumonia cryptococcal [Recovering/Resolving]
  - Confusional state [Recovering/Resolving]
  - Gait disturbance [Recovering/Resolving]
  - Product use in unapproved indication [Unknown]
  - Disseminated cryptococcosis [Recovering/Resolving]
  - Focal dyscognitive seizures [Recovering/Resolving]
  - Productive cough [Recovering/Resolving]
  - Dyspnoea [Recovering/Resolving]
  - Meningitis cryptococcal [Recovering/Resolving]
  - Ataxia [Recovering/Resolving]
